FAERS Safety Report 14312598 (Version 1)
Quarter: 2017Q4

REPORT INFORMATION
  Report Type: Spontaneous
  Country: US (occurrence: US)
  Receive Date: 20171221
  Receipt Date: 20171221
  Transmission Date: 20180321
  Serious: No
  Sender: FDA-Public Use
  Company Number: US-PFIZER INC-2017542738

PATIENT
  Age: 47 Year
  Sex: Male
  Weight: 111.13 kg

DRUGS (1)
  1. VIAGRA [Suspect]
     Active Substance: SILDENAFIL CITRATE
     Indication: ERECTILE DYSFUNCTION
     Dosage: 100 MG, AS NEEDED (ONCE DAILY OR AS NEEDED)
     Dates: start: 2013

REACTIONS (1)
  - Dyspepsia [Recovered/Resolved]
